FAERS Safety Report 18624804 (Version 4)
Quarter: 2021Q1

REPORT INFORMATION
  Report Type: Report from Study
  Country: BR (occurrence: BR)
  Receive Date: 20201216
  Receipt Date: 20210212
  Transmission Date: 20210419
  Serious: Yes (Hospitalization, Other)
  Sender: FDA-Public Use
  Company Number: NVSC2020BR333265

PATIENT
  Age: 42 Year
  Sex: Female

DRUGS (3)
  1. KISQALI [Suspect]
     Active Substance: RIBOCICLIB
     Indication: PRODUCT USED FOR UNKNOWN INDICATION
     Dosage: UNK
     Route: 065
  2. KISQALI [Suspect]
     Active Substance: RIBOCICLIB
     Dosage: UNK
     Route: 065
     Dates: start: 20201127
  3. KISQALI [Suspect]
     Active Substance: RIBOCICLIB
     Dosage: UNK
     Route: 065
     Dates: start: 20201123

REACTIONS (12)
  - Dysstasia [Unknown]
  - Oedema [Unknown]
  - Abdominal distension [Recovering/Resolving]
  - Ascites [Unknown]
  - Discomfort [Unknown]
  - Vomiting [Recovered/Resolved]
  - Gastrointestinal disorder [Unknown]
  - Dysphagia [Recovered/Resolved]
  - Hepatic function abnormal [Unknown]
  - Feeding disorder [Unknown]
  - Dyspnoea [Recovered/Resolved]
  - Drug ineffective [Unknown]

NARRATIVE: CASE EVENT DATE: 20201206
